FAERS Safety Report 8226062-1 (Version None)
Quarter: 2012Q1

REPORT INFORMATION
  Report Type: 
  Country: None (occurrence: None)
  Receive Date: 20120319
  Receipt Date: 20120307
  Transmission Date: 20120608
  Serious: Yes (Death, Life-Threatening)
  Sender: FDA-Public Use
  Company Number: AUR-APL-2012-01320

PATIENT
  Age: 70 Year
  Sex: Male

DRUGS (12)
  1. RISPERDAL [Suspect]
     Indication: PRODUCT USED FOR UNKNOWN INDICATION
     Dosage: (1.5 MG), ORAL, (2 MG), ORAL
     Route: 048
     Dates: start: 20111118, end: 20111121
  2. RISPERDAL [Suspect]
     Indication: PRODUCT USED FOR UNKNOWN INDICATION
     Dosage: (1.5 MG), ORAL, (2 MG), ORAL
     Route: 048
     Dates: end: 20111117
  3. IBUPROFEN [Concomitant]
  4. TILIDIN (VALORON N /00628301/) [Suspect]
     Indication: PRODUCT USED FOR UNKNOWN INDICATION
     Dosage: (208 MG), ORAL
     Route: 048
     Dates: end: 20111121
  5. MIRTAZAPINE [Suspect]
     Indication: PRODUCT USED FOR UNKNOWN INDICATION
     Dosage: (45 MG), ORAL, (30 MG), ORAL
     Route: 048
     Dates: end: 20111117
  6. MIRTAZAPINE [Suspect]
     Indication: PRODUCT USED FOR UNKNOWN INDICATION
     Dosage: (45 MG), ORAL, (30 MG), ORAL
     Route: 048
     Dates: start: 20111118, end: 20111121
  7. PANTOPRAZOLE SODIUM [Concomitant]
  8. METFORMIN HCL [Concomitant]
  9. MELPERON (MELPERONE HYDROCHLORIDE) [Suspect]
     Indication: PRODUCT USED FOR UNKNOWN INDICATION
     Dosage: ORAL
     Route: 048
     Dates: end: 20111117
  10. AMLODIPINE [Suspect]
     Indication: PRODUCT USED FOR UNKNOWN INDICATION
     Dosage: (5 MG), ORAL
     Route: 048
     Dates: end: 20111121
  11. JONOSTERIL (JONOSTERIL /00351401/) [Concomitant]
  12. ACETYLSALICYLIC ACID SRT [Suspect]
     Indication: PRODUCT USED FOR UNKNOWN INDICATION
     Dosage: (40 MG), ORAL
     Route: 048
     Dates: start: 20111120, end: 20111120

REACTIONS (7)
  - FATIGUE [None]
  - PNEUMONIA [None]
  - TREMOR [None]
  - HALLUCINATION, VISUAL [None]
  - INSOMNIA [None]
  - UNRESPONSIVE TO STIMULI [None]
  - UNEVALUABLE EVENT [None]
